FAERS Safety Report 21530646 (Version 2)
Quarter: 2022Q4

REPORT INFORMATION
  Report Type: Spontaneous
  Country: JP (occurrence: JP)
  Receive Date: 20221031
  Receipt Date: 20221116
  Transmission Date: 20230112
  Serious: Yes (Hospitalization)
  Sender: FDA-Public Use
  Company Number: JP-CHEPLA-2022009392

PATIENT
  Age: 14 Year
  Sex: Male
  Weight: 54 kg

DRUGS (8)
  1. HYDROCORTISONE BUTYRATE [Suspect]
     Active Substance: HYDROCORTISONE BUTYRATE
     Indication: Dermatitis atopic
     Route: 061
     Dates: start: 20120322
  2. DEXAMETHASONE DIPROPIONATE [Suspect]
     Active Substance: DEXAMETHASONE DIPROPIONATE
     Indication: Dermatitis atopic
     Route: 061
     Dates: start: 20121022
  3. CALONAL [Suspect]
     Active Substance: ACETAMINOPHEN
     Indication: Nasopharyngitis
     Route: 048
     Dates: start: 20201228
  4. CALONAL [Suspect]
     Active Substance: ACETAMINOPHEN
     Indication: Headache
     Route: 048
     Dates: start: 20221016, end: 20221016
  5. CALONAL [Suspect]
     Active Substance: ACETAMINOPHEN
     Route: 048
     Dates: start: 20221015, end: 20221016
  6. CANTHARIDIN [Concomitant]
     Active Substance: CANTHARIDIN
     Indication: Molluscum contagiosum
     Dosage: TO-208
     Route: 003
     Dates: start: 20220921
  7. SAHNE [Concomitant]
     Indication: Dermatitis atopic
     Route: 061
     Dates: start: 20110720
  8. WHITE PETROLATUM [Concomitant]
     Active Substance: PETROLATUM
     Indication: Dermatitis atopic
     Route: 061
     Dates: start: 20200424

REACTIONS (2)
  - Anaemia [Recovered/Resolved]
  - Loss of consciousness [Recovered/Resolved]

NARRATIVE: CASE EVENT DATE: 20221016
